FAERS Safety Report 4994535-0 (Version None)
Quarter: 2006Q2

REPORT INFORMATION
  Report Type: 
  Country: None (occurrence: None)
  Receive Date: 20060505
  Receipt Date: 20051128
  Transmission Date: 20061013
  Serious: Yes (Hospitalization, Disabling)
  Sender: FDA-Public Use
  Company Number: US-MERCK-0511USA04347

PATIENT
  Age: 55 Year
  Sex: Male
  Weight: 89 kg

DRUGS (4)
  1. VIOXX [Suspect]
     Indication: ARTHRITIS
     Route: 048
     Dates: start: 20010101, end: 20031101
  2. VIOXX [Suspect]
     Route: 048
     Dates: start: 20040401, end: 20040501
  3. ASPIRIN [Concomitant]
     Route: 048
  4. TYLENOL (CAPLET) [Concomitant]
     Route: 048

REACTIONS (8)
  - CARDIAC DISORDER [None]
  - CARDIAC VALVE DISEASE [None]
  - CORONARY ARTERIAL STENT INSERTION [None]
  - DYSPEPSIA [None]
  - HAEMATOCHEZIA [None]
  - HERNIA [None]
  - HYPERTENSION [None]
  - OEDEMA [None]
